FAERS Safety Report 11779441 (Version 2)
Quarter: 2015Q4

REPORT INFORMATION
  Report Type: Spontaneous
  Country: DE (occurrence: JP)
  Receive Date: 20151125
  Receipt Date: 20151210
  Transmission Date: 20160304
  Serious: Yes (Life-Threatening, Hospitalization, Disabling)
  Sender: FDA-Public Use
  Company Number: JP-FRI-1000081079

PATIENT
  Age: 60 Year
  Sex: Female
  Weight: 50 kg

DRUGS (17)
  1. POSCARL [Concomitant]
     Dates: start: 20140101, end: 20150223
  2. CALTAN [Concomitant]
     Active Substance: CALCIUM CARBONATE
     Dates: start: 20140101, end: 20150228
  3. MEMANTINE. [Suspect]
     Active Substance: MEMANTINE
     Indication: DEMENTIA ALZHEIMER^S TYPE
     Dosage: 5 MG
     Route: 048
     Dates: start: 20150121, end: 20150128
  4. ALLOPURINOL. [Concomitant]
     Active Substance: ALLOPURINOL
     Dates: start: 20140101, end: 20150228
  5. YOKUKANSAN [Suspect]
     Active Substance: HERBALS
     Indication: DEMENTIA ALZHEIMER^S TYPE
     Dosage: 7.5 G
     Route: 048
     Dates: start: 20150117, end: 20150226
  6. TIMKENT [Concomitant]
     Dates: start: 20140101, end: 20150228
  7. METHYCOBAL [Concomitant]
     Active Substance: METHYLCOBALAMIN
     Dates: start: 20140101, end: 20150228
  8. REMITCH [Concomitant]
     Active Substance: NALFURAFINE HYDROCHLORIDE
     Dates: start: 20140101, end: 20150228
  9. MICARDIS [Concomitant]
     Active Substance: TELMISARTAN
     Dates: start: 20140101, end: 20150228
  10. RENAGEL [Concomitant]
     Active Substance: SEVELAMER HYDROCHLORIDE
     Dates: start: 20140101, end: 20150228
  11. SARPOGRELATE HYDROCHLORIDE [Concomitant]
     Active Substance: SARPOGRELATE
     Dates: start: 20140813, end: 20150224
  12. RISUMIC [Concomitant]
     Active Substance: AMEZINIUM METILSULFATE
     Dates: start: 20140101, end: 20150228
  13. MEMANTINE. [Suspect]
     Active Substance: MEMANTINE
     Dosage: 10 MG
     Route: 048
     Dates: start: 20150129, end: 20150223
  14. THYRADIN S [Concomitant]
     Active Substance: LEVOTHYROXINE SODIUM
     Dates: start: 20150122
  15. FOSRENOL [Concomitant]
     Active Substance: LANTHANUM CARBONATE
     Dates: start: 20140101, end: 20150223
  16. BIOFERMIN R [Concomitant]
     Active Substance: BACILLUS SUBTILIS\LACTOBACILLUS ACIDOPHILUS\STREPTOCOCCUS FAECAIS
     Dates: start: 20140101, end: 20150228
  17. AMLODIPINE [Concomitant]
     Active Substance: AMLODIPINE BESYLATE
     Dates: start: 20140101, end: 20150226

REACTIONS (3)
  - Genital haemorrhage [Recovered/Resolved]
  - Encephalitis [Recovering/Resolving]
  - Platelet count decreased [Recovered/Resolved]

NARRATIVE: CASE EVENT DATE: 20150202
